FAERS Safety Report 15582439 (Version 2)
Quarter: 2018Q4

REPORT INFORMATION
  Report Type: Spontaneous
  Country: US (occurrence: US)
  Receive Date: 20181102
  Receipt Date: 20181108
  Transmission Date: 20190205
  Serious: No
  Sender: FDA-Public Use
  Company Number: US-TEVA-2018-US-968870

PATIENT

DRUGS (1)
  1. BACLOFEN TEVA [Suspect]
     Active Substance: BACLOFEN
     Indication: MUSCLE SPASTICITY
     Dosage: 8 DOSAGE FORMS DAILY; FROM 10 YEARS, 8 TABLETS PER DAY
     Dates: start: 20180919

REACTIONS (2)
  - Drug effect decreased [Unknown]
  - Product substitution issue [Unknown]
